FAERS Safety Report 9500222 (Version 1)
Quarter: 2013Q3

REPORT INFORMATION
  Report Type: Spontaneous
  Country: US (occurrence: None)
  Receive Date: 20130904
  Receipt Date: 20130904
  Transmission Date: 20140515
  Serious: No
  Sender: FDA-Public Use
  Company Number: None

PATIENT
  Age: 46 Year
  Sex: Female

DRUGS (15)
  1. TECFIDERA [Suspect]
     Indication: MULTIPLE SCLEROSIS
     Dosage: 1 CAPSULE, BID, ORAL
     Route: 048
     Dates: start: 201308
  2. GABAPENTIN [Concomitant]
  3. TIZANIDINE [Concomitant]
  4. BUPROPION [Concomitant]
  5. CITALOPRAM [Concomitant]
  6. DIVALPROEX SODIUM [Concomitant]
  7. SIMVASTATIN [Concomitant]
  8. ZOLPIDEM [Concomitant]
  9. MODAFINIL [Concomitant]
  10. LOW DOSE ASPIRIN [Concomitant]
  11. CALCIUM PLUS D [Concomitant]
  12. MULTIVITAMIN [Concomitant]
  13. TRAZODONE [Concomitant]
  14. LANSOPRAZOLE [Concomitant]
  15. RANITIDINE [Concomitant]

REACTIONS (2)
  - Abdominal pain [None]
  - Nausea [None]
